FAERS Safety Report 8443172-4 (Version None)
Quarter: 2012Q2

REPORT INFORMATION
  Report Type: 
  Country: None (occurrence: None)
  Receive Date: 20120616
  Receipt Date: 20120608
  Transmission Date: 20120825
  Serious: Yes (Other)
  Sender: FDA-Public Use
  Company Number: FI-AMGEN-FINSP2012029982

PATIENT
  Age: 25 Year
  Sex: Male
  Weight: 92 kg

DRUGS (17)
  1. ARANESP [Suspect]
     Indication: NEPHROGENIC ANAEMIA
     Dosage: 150 MUG, QWK
     Route: 058
     Dates: start: 20110603
  2. RENVELA [Concomitant]
     Indication: HYPERPHOSPHATAEMIA
     Dosage: 800 MG, 4X2 TBL/DAY
     Route: 048
     Dates: start: 20110212
  3. CARDACE                            /00574902/ [Concomitant]
     Dosage: 10 MG, QD
  4. METOPROLOL SUCCINATE [Concomitant]
     Indication: CONGESTIVE CARDIOMYOPATHY
  5. ZEMPLAR [Concomitant]
     Indication: HYPERPARATHYROIDISM SECONDARY
     Dosage: 4 MUG, Q3WK
     Route: 048
     Dates: start: 20120303
  6. VENOTRIX [Concomitant]
     Indication: IRON DEFICIENCY ANAEMIA
     Dosage: 100 MG, QWK
     Route: 042
     Dates: start: 20111215
  7. AMLODIPINE BESYLATE [Concomitant]
     Indication: RENAL HYPERTENSION
     Dosage: 10 MG, QD
     Route: 048
     Dates: start: 20040723
  8. ARANESP [Suspect]
     Dosage: UNK
     Dates: start: 20030101
  9. FRAGMIN [Concomitant]
     Indication: ANTICOAGULANT THERAPY
     Dosage: 7500 IU, Q3WK
     Route: 042
     Dates: start: 20110101
  10. CALCIUM CARBONATE [Concomitant]
     Indication: HYPERPHOSPHATAEMIA
     Dosage: 500 MG, 4X2 TBL/DAY
     Route: 048
     Dates: start: 20090424
  11. PRATSIOL [Concomitant]
     Indication: RENAL HYPERTENSION
     Dosage: 1 MG, BID
     Route: 048
     Dates: start: 20110807
  12. RENALVITE [Concomitant]
     Indication: VITAMIN SUPPLEMENTATION
     Dosage: 1 DF, QD
     Route: 048
     Dates: start: 20010120
  13. BLOOD AND RELATED PRODUCTS [Concomitant]
  14. GAMMAGLOBULIN                      /00025201/ [Concomitant]
  15. METOPROLOL SUCCINATE [Concomitant]
     Indication: RENAL HYPERTENSION
     Dosage: 95 MG, QD
     Route: 048
     Dates: start: 20021224
  16. RAMIPRIL [Concomitant]
     Indication: CONGESTIVE CARDIOMYOPATHY
     Dosage: 10 MG, QD
     Route: 048
     Dates: start: 20100315
  17. DISPERIN                           /00002701/ [Concomitant]
     Indication: THROMBOSIS PROPHYLAXIS
     Dosage: 50 MG, QD
     Route: 048
     Dates: start: 20021224

REACTIONS (5)
  - APLASIA PURE RED CELL [None]
  - CONGESTIVE CARDIOMYOPATHY [None]
  - ACNE CYSTIC [None]
  - INFLUENZA [None]
  - LIVER DISORDER [None]
